FAERS Safety Report 25820748 (Version 1)
Quarter: 2025Q3

REPORT INFORMATION
  Report Type: 
  Country: CN (occurrence: CN)
  Receive Date: 20250919
  Receipt Date: 20250919
  Transmission Date: 20251021
  Serious: Yes (Hospitalization)
  Sender: JIANGSU HANSOH PHARMACEUTICAL GROUP CO., LTD.
  Company Number: CN-Hansoh-20252190016939

PATIENT
  Age: 55 Year
  Sex: Male
  Weight: 62.4 kg

DRUGS (2)
  1. OXALIPLATIN [Suspect]
     Active Substance: OXALIPLATIN
     Indication: Bladder cancer
     Dosage: 200MG,ONCE A WEEK
     Route: 041
     Dates: start: 20250718, end: 20250815
  2. GEMCITABINE HYDROCHLORIDE [Suspect]
     Active Substance: GEMCITABINE HYDROCHLORIDE
     Indication: Bladder cancer
     Dosage: 1.6G,ONCE A WEEK
     Route: 041
     Dates: start: 20250718, end: 20250815

REACTIONS (7)
  - Platelet count decreased [Recovering/Resolving]
  - Haemorrhage urinary tract [Recovering/Resolving]
  - Urinary retention [Recovering/Resolving]
  - Abdominal pain lower [Recovering/Resolving]
  - Abdominal distension [Recovering/Resolving]
  - Haematuria [Recovering/Resolving]
  - Off label use [Unknown]

NARRATIVE: CASE EVENT DATE: 20250815
